FAERS Safety Report 6227568-7 (Version None)
Quarter: 2009Q2

REPORT INFORMATION
  Report Type: 
  Country: None (occurrence: None)
  Receive Date: 20090612
  Receipt Date: 20090603
  Transmission Date: 20091009
  Serious: Yes (Hospitalization)
  Sender: FDA-Public Use
  Company Number: US-BIOGENIDEC-164701

PATIENT
  Age: 60 Year
  Sex: Female
  Weight: 65 kg

DRUGS (9)
  1. AVONEX [Suspect]
     Indication: MULTIPLE SCLEROSIS
     Route: 030
     Dates: start: 19981116, end: 20030101
  2. AVONEX [Suspect]
     Route: 030
     Dates: start: 20030101, end: 20061101
  3. AVONEX [Suspect]
     Route: 030
     Dates: start: 20070307, end: 20071107
  4. AVONEX [Suspect]
     Route: 030
     Dates: start: 20080227
  5. ZOCOR [Concomitant]
     Indication: BLOOD CHOLESTEROL INCREASED
  6. XANAX [Concomitant]
     Indication: ANXIETY
  7. IBUPROFEN [Concomitant]
     Indication: BACK PAIN
     Dates: start: 19960101
  8. PRILOSEC [Concomitant]
     Indication: GASTRIC DISORDER
  9. DARVOCET [Concomitant]
     Indication: BACK PAIN

REACTIONS (1)
  - LUNG ADENOCARCINOMA [None]
